FAERS Safety Report 7880524-5 (Version None)
Quarter: 2011Q4

REPORT INFORMATION
  Report Type: 
  Country: None (occurrence: None)
  Receive Date: 20111101
  Receipt Date: 20111028
  Transmission Date: 20120403
  Serious: Yes (Death)
  Sender: FDA-Public Use
  Company Number: PHHY2007NL03765

PATIENT
  Sex: Male

DRUGS (9)
  1. BISOPROLOL [Concomitant]
     Dosage: 2.5 MG, QD
     Route: 048
  2. FLECAINIDE ACETATE [Concomitant]
     Dosage: 100 MG, QD
  3. SANDOSTATIN LAR [Suspect]
     Dosage: 20 MG (ONCE PER 4 WEEKS)
     Route: 030
     Dates: start: 20060821
  4. SANDOSTATIN LAR [Suspect]
     Dosage: 30 MG (ONCE PER 4 WEEKS)
     Route: 030
     Dates: start: 20070908
  5. SANDOSTATIN LAR [Suspect]
     Indication: CARCINOID TUMOUR
     Dosage: 30 MG (PER 2 WEEKS)
     Route: 030
     Dates: start: 20060101
  6. SANDOSTATIN LAR [Suspect]
     Dosage: 20 MG (ONCE PER 4 WEEKS)
     Route: 030
     Dates: start: 20061204
  7. BUMETANIDE [Concomitant]
     Dosage: 1 MG, QD
  8. SANDOSTATIN LAR [Suspect]
     Dosage: 20 MG (ONCE PER 4 WEEKS)
     Route: 030
     Dates: start: 20060218, end: 20060623
  9. ANTIARRHYTHMICS [Concomitant]

REACTIONS (3)
  - CARDIAC DEATH [None]
  - CARCINOID HEART DISEASE [None]
  - BUNDLE BRANCH BLOCK RIGHT [None]
